FAERS Safety Report 13767811 (Version 2)
Quarter: 2017Q3

REPORT INFORMATION
  Report Type: Spontaneous
  Country: US (occurrence: US)
  Receive Date: 20170719
  Receipt Date: 20170914
  Transmission Date: 20171127
  Serious: No
  Sender: FDA-Public Use
  Company Number: US-PFIZER INC-2017307545

PATIENT
  Age: 43 Year
  Sex: Female

DRUGS (6)
  1. FLONASE [Concomitant]
     Active Substance: FLUTICASONE PROPIONATE
     Dosage: UNK
  2. GENOTROPIN [Suspect]
     Active Substance: SOMATROPIN
     Indication: ADRENAL INSUFFICIENCY
     Dosage: 0.4 MG, DAILY
     Route: 058
     Dates: start: 2017
  3. HYDROCORTISONE. [Concomitant]
     Active Substance: HYDROCORTISONE
     Indication: STRESS
     Dosage: 2.5 MG MORNING, 1.25MG AFTERNOON AND 1.25 MG EVENING
     Route: 048
  4. GLUCAGON. [Concomitant]
     Active Substance: GLUCAGON
     Dosage: 1 MG, AS NEEDED
     Route: 030
  5. XANAX [Concomitant]
     Active Substance: ALPRAZOLAM
     Dosage: 0.25 MG, AS NEEDED
     Route: 048
  6. LEXAPRO [Concomitant]
     Active Substance: ESCITALOPRAM OXALATE
     Dosage: 20 MG, 1X/DAY
     Route: 048

REACTIONS (3)
  - Product use in unapproved indication [Unknown]
  - Somnolence [Unknown]
  - Drug dose omission [Unknown]

NARRATIVE: CASE EVENT DATE: 2017
